FAERS Safety Report 7210904-2 (Version None)
Quarter: 2011Q1

REPORT INFORMATION
  Report Type: 
  Country: None (occurrence: None)
  Receive Date: 20110105
  Receipt Date: 20101228
  Transmission Date: 20110831
  Serious: Yes (Hospitalization)
  Sender: FDA-Public Use
  Company Number: US-ELI_LILLY_AND_COMPANY-US200912004905

PATIENT
  Age: 68 Year
  Sex: Female

DRUGS (1)
  1. FORTEO [Suspect]
     Indication: OSTEOPOROSIS

REACTIONS (8)
  - HOSPITALISATION [None]
  - MUSCULOSKELETAL STIFFNESS [None]
  - VIRAL INFECTION [None]
  - FEAR [None]
  - BLOOD PRESSURE FLUCTUATION [None]
  - GAIT DISTURBANCE [None]
  - VISUAL IMPAIRMENT [None]
  - FEELING ABNORMAL [None]
